FAERS Safety Report 6428024-3 (Version None)
Quarter: 2009Q4

REPORT INFORMATION
  Report Type: 
  Country: None (occurrence: None)
  Receive Date: 20091105
  Receipt Date: 20091026
  Transmission Date: 20100525
  Serious: Yes (Other)
  Sender: FDA-Public Use
  Company Number: US-ROCHE-665045

PATIENT
  Age: 11 Year
  Sex: Female
  Weight: 41.3 kg

DRUGS (2)
  1. TAMIFLU [Suspect]
     Indication: INFLUENZA
     Dosage: ONE DOSE
     Route: 048
     Dates: start: 20091023
  2. TYLENOL [Concomitant]
     Dates: start: 20091023

REACTIONS (4)
  - CONFUSIONAL STATE [None]
  - CRYING [None]
  - HALLUCINATION [None]
  - VOMITING [None]
